FAERS Safety Report 6630330-4 (Version None)
Quarter: 2010Q1

REPORT INFORMATION
  Report Type: 
  Country: None (occurrence: None)
  Receive Date: 20100311
  Receipt Date: 20100309
  Transmission Date: 20100710
  Serious: Yes (Death, Other)
  Sender: FDA-Public Use
  Company Number: PHHY2010FR13684

PATIENT
  Sex: Male

DRUGS (2)
  1. EXELON [Suspect]
     Indication: DEMENTIA ALZHEIMER'S TYPE
     Dosage: 4.6 MG, QD
     Route: 062
  2. EXELON [Suspect]
     Dosage: 9.5 MG, QD

REACTIONS (2)
  - FALL [None]
  - SUDDEN DEATH [None]
